FAERS Safety Report 6407244-8 (Version None)
Quarter: 2009Q4

REPORT INFORMATION
  Report Type: 
  Country: None (occurrence: None)
  Receive Date: 20091020
  Receipt Date: 20091006
  Transmission Date: 20100525
  Serious: Yes (Other)
  Sender: FDA-Public Use
  Company Number: PHHY2009IE34989

PATIENT
  Sex: Male

DRUGS (1)
  1. CLOZARIL [Suspect]
     Indication: SCHIZOPHRENIA
     Dosage: UNK
     Route: 048
     Dates: start: 20090727

REACTIONS (6)
  - BALANCE DISORDER [None]
  - CONCOMITANT DISEASE AGGRAVATED [None]
  - INCONTINENCE [None]
  - NORMAL PRESSURE HYDROCEPHALUS [None]
  - SALIVARY HYPERSECRETION [None]
  - VIRAL INFECTION [None]
